FAERS Safety Report 6397575-2 (Version None)
Quarter: 2009Q4

REPORT INFORMATION
  Report Type: 
  Country: None (occurrence: None)
  Receive Date: 20091007
  Receipt Date: 20090925
  Transmission Date: 20100525
  Serious: Yes (Other)
  Sender: FDA-Public Use
  Company Number: 09-001548

PATIENT
  Sex: Male

DRUGS (1)
  1. DORYX [Suspect]
     Dosage: ORAL
     Route: 048
     Dates: start: 20070101

REACTIONS (1)
  - THYROID NEOPLASM [None]
